FAERS Safety Report 6283959-X (Version None)
Quarter: 2009Q3

REPORT INFORMATION
  Report Type: 
  Country: None (occurrence: None)
  Receive Date: 20090722
  Receipt Date: 20090707
  Transmission Date: 20100115
  Serious: Yes (Death, Hospitalization)
  Sender: FDA-Public Use
  Company Number: 090709-0000791

PATIENT

DRUGS (3)
  1. COSMEGEN [Suspect]
     Indication: NEPHROBLASTOMA
     Dosage: IV
     Route: 042
  2. VINCRISTINE [Suspect]
     Indication: NEPHROBLASTOMA
  3. DOXORUBICIN HCL [Suspect]
     Indication: NEPHROBLASTOMA

REACTIONS (1)
  - VENOOCCLUSIVE DISEASE [None]
